FAERS Safety Report 14671653 (Version 1)
Quarter: 2018Q1

REPORT INFORMATION
  Report Type: Spontaneous
  Country: AR (occurrence: AR)
  Receive Date: 20180323
  Receipt Date: 20180323
  Transmission Date: 20180509
  Serious: Yes (Hospitalization)
  Sender: FDA-Public Use
  Company Number: AR-CIPLA LTD.-2018AR12436

PATIENT

DRUGS (10)
  1. DOXORUBICIN HYDROCHLORIDE. [Interacting]
     Active Substance: DOXORUBICIN HYDROCHLORIDE
     Dosage: UNK, 50% DOSE REDUCTION
     Route: 065
  2. VINBLASTINE [Interacting]
     Active Substance: VINBLASTINE
     Indication: HODGKIN^S DISEASE
     Dosage: UNK
     Route: 065
  3. RITONAVIR. [Interacting]
     Active Substance: RITONAVIR
     Indication: HIV INFECTION
     Dosage: UNK
     Route: 065
  4. EMTRICITABINE [Suspect]
     Active Substance: EMTRICITABINE
     Indication: HIV INFECTION
     Dosage: UNK
     Route: 065
  5. DOXORUBICIN HYDROCHLORIDE. [Interacting]
     Active Substance: DOXORUBICIN HYDROCHLORIDE
     Indication: HODGKIN^S DISEASE
     Dosage: UNK
     Route: 065
  6. DACARBAZINE. [Interacting]
     Active Substance: DACARBAZINE
     Dosage: UNK, 50% DOSE REDUCTION
     Route: 065
  7. BLEOMYCIN SULPHATE [Interacting]
     Active Substance: BLEOMYCIN SULFATE
     Indication: HODGKIN^S DISEASE
     Dosage: UNK
     Route: 065
  8. TENOFOVIR [Interacting]
     Active Substance: TENOFOVIR
     Indication: HIV INFECTION
     Dosage: UNK
     Route: 065
  9. ATAZANAVIR. [Interacting]
     Active Substance: ATAZANAVIR SULFATE
     Indication: HIV INFECTION
     Dosage: UNK
     Route: 065
  10. DACARBAZINE. [Interacting]
     Active Substance: DACARBAZINE
     Indication: HODGKIN^S DISEASE
     Dosage: UNK
     Route: 065

REACTIONS (4)
  - Hypokalaemia [Recovered/Resolved]
  - Drug interaction [Unknown]
  - Renal tubular dysfunction [Recovered/Resolved]
  - Febrile neutropenia [Recovered/Resolved]
